FAERS Safety Report 24146674 (Version 1)
Quarter: 2024Q3

REPORT INFORMATION
  Report Type: Spontaneous
  Country: US (occurrence: US)
  Receive Date: 20240729
  Receipt Date: 20240729
  Transmission Date: 20241017
  Serious: No
  Sender: ABBVIE
  Company Number: US-ABBVIE-5854538

PATIENT

DRUGS (4)
  1. BOTOX [Suspect]
     Active Substance: ONABOTULINUMTOXINA
     Indication: Skin wrinkling
     Dosage: TIME INTERVAL: AS NECESSARY: DOSE 35 UNITS
     Route: 065
     Dates: start: 202406, end: 202406
  2. BOTOX [Suspect]
     Active Substance: ONABOTULINUMTOXINA
     Indication: Skin wrinkling
     Dosage: TIME INTERVAL: AS NECESSARY: DOSE 35 UNITS
     Route: 065
     Dates: start: 202406, end: 202406
  3. BOTOX [Suspect]
     Active Substance: ONABOTULINUMTOXINA
     Indication: Skin wrinkling
     Dosage: TIME INTERVAL: AS NECESSARY: DOSE 100 UNIT
     Route: 065
     Dates: start: 202406, end: 202406
  4. BOTOX [Suspect]
     Active Substance: ONABOTULINUMTOXINA
     Indication: Skin wrinkling
     Dosage: TIME INTERVAL: AS NECESSARY: DOSE 50 UNIT
     Route: 065
     Dates: start: 202406, end: 202406

REACTIONS (3)
  - Poor quality product administered [Unknown]
  - Drug ineffective [Unknown]
  - Product preparation error [Unknown]

NARRATIVE: CASE EVENT DATE: 20240101
